FAERS Safety Report 7902910-7 (Version None)
Quarter: 2011Q4

REPORT INFORMATION
  Report Type: 
  Country: None (occurrence: None)
  Receive Date: 20111109
  Receipt Date: 20111021
  Transmission Date: 20120403
  Serious: Yes (Other)
  Sender: FDA-Public Use
  Company Number: CA-JNJFOC-20111011602

PATIENT
  Sex: Female
  Weight: 75.8 kg

DRUGS (7)
  1. UNSPECIFIED BIRTH CONTROL [Concomitant]
  2. IRON [Concomitant]
  3. IMURAN [Suspect]
     Indication: PRODUCT USED FOR UNKNOWN INDICATION
     Route: 065
  4. REMICADE [Suspect]
     Dosage: 1ST LOADING DOSE
     Route: 042
     Dates: start: 20111021
  5. CELEXA [Concomitant]
  6. PREDNISONE [Concomitant]
  7. REMICADE [Suspect]
     Indication: COLITIS ULCERATIVE
     Dosage: 1ST LOADING DOSE
     Route: 042

REACTIONS (4)
  - VOMITING [None]
  - HYPERSENSITIVITY [None]
  - NAUSEA [None]
  - DIARRHOEA [None]
